FAERS Safety Report 25246512 (Version 1)
Quarter: 2025Q2

REPORT INFORMATION
  Report Type: Spontaneous
  Country: US (occurrence: None)
  Receive Date: 20250428
  Receipt Date: 20250428
  Transmission Date: 20250716
  Serious: Yes (Hospitalization)
  Sender: FDA-CTU
  Company Number: None

PATIENT
  Age: 61 Year
  Sex: Female

DRUGS (5)
  1. REPATHA [Suspect]
     Active Substance: EVOLOCUMAB
     Indication: Low density lipoprotein
     Route: 050
     Dates: end: 20230318
  2. ATORVASTATIN [Concomitant]
     Active Substance: ATORVASTATIN
  3. ZETIA [Concomitant]
     Active Substance: EZETIMIBE
  4. LISINOPRIL [Concomitant]
     Active Substance: LISINOPRIL
  5. ASPIRIN [Concomitant]
     Active Substance: ASPIRIN

REACTIONS (3)
  - Lip pain [None]
  - Lip swelling [None]
  - Skin tightness [None]

NARRATIVE: CASE EVENT DATE: 20240318
